FAERS Safety Report 18362424 (Version 1)
Quarter: 2020Q4

REPORT INFORMATION
  Report Type: Spontaneous
  Country: GB (occurrence: GB)
  Receive Date: 20201009
  Receipt Date: 20201009
  Transmission Date: 20210114
  Serious: Yes (Death)
  Sender: FDA-Public Use
  Company Number: GB-009507513-2010GBR002184

PATIENT
  Age: 69 Year
  Sex: Male
  Weight: 73.4 kg

DRUGS (8)
  1. ACETAMINOPHEN AND CODEINE [Concomitant]
     Active Substance: ACETAMINOPHEN\CODEINE PHOSPHATE
  2. FOLIC ACID. [Concomitant]
     Active Substance: FOLIC ACID
  3. EVACAL [Concomitant]
  4. FLUTICASONE. [Concomitant]
     Active Substance: FLUTICASONE
  5. ALLOPURINOL. [Concomitant]
     Active Substance: ALLOPURINOL
  6. SIMVASTATIN. [Concomitant]
     Active Substance: SIMVASTATIN
  7. PEMBROLIZUMAB. [Suspect]
     Active Substance: PEMBROLIZUMAB
     Indication: LUNG ADENOCARCINOMA
     Dosage: 200 MILLIGRAM
     Route: 042
     Dates: start: 20180709, end: 20181018
  8. NAPROXEN SODIUM. [Concomitant]
     Active Substance: NAPROXEN SODIUM

REACTIONS (3)
  - Abdominal pain [Unknown]
  - Diarrhoea [Unknown]
  - Diverticular perforation [Fatal]

NARRATIVE: CASE EVENT DATE: 20181027
